FAERS Safety Report 12329547 (Version 1)
Quarter: 2016Q2

REPORT INFORMATION
  Report Type: Spontaneous
  Country: GB (occurrence: GB)
  Receive Date: 20160503
  Receipt Date: 20160503
  Transmission Date: 20160815
  Serious: Yes (Disabling, Other)
  Sender: FDA-Public Use
  Company Number: PHHY2016GB058324

PATIENT
  Age: 87 Year
  Sex: Female
  Weight: 60 kg

DRUGS (9)
  1. BISOPROLOL [Concomitant]
     Active Substance: BISOPROLOL
     Indication: MYOCARDIAL INFARCTION
     Dosage: 1.25 MG, QD, CURRENT
     Route: 048
     Dates: start: 201303
  2. DONEPEZIL. [Suspect]
     Active Substance: DONEPEZIL
     Dosage: 5 MG, QD, AT NIGHT
     Route: 048
     Dates: start: 20160410, end: 20160411
  3. ATORVASTATIN [Concomitant]
     Active Substance: ATORVASTATIN
     Indication: TRANSIENT ISCHAEMIC ATTACK
     Dosage: 20 MG, QD, CURRENT
     Route: 048
     Dates: start: 201303
  4. ACETYLSALICYLIC ACID [Concomitant]
     Active Substance: ASPIRIN
     Indication: TRANSIENT ISCHAEMIC ATTACK
     Dosage: 75 MG, QD, CURRENT
     Route: 048
     Dates: start: 201303
  5. RANITIDINE. [Concomitant]
     Active Substance: RANITIDINE
     Indication: GASTRIC DISORDER
     Dosage: CURRENT
     Route: 048
     Dates: start: 201303
  6. DONEPEZIL. [Suspect]
     Active Substance: DONEPEZIL
     Indication: DEMENTIA
     Dosage: 10 MG, QD, AT NIGHT
     Route: 048
     Dates: start: 20120229, end: 20160408
  7. MULTI VIT [Concomitant]
     Indication: INADEQUATE DIET
     Dosage: CURRENT
     Route: 048
     Dates: start: 201303
  8. ISOSORBIDE MONONITRATE EXTENDED RELEASE [Concomitant]
     Active Substance: ISOSORBIDE MONONITRATE
     Indication: ANGINA PECTORIS
     Dosage: 25 MG, QD, CURRENT
     Route: 048
     Dates: start: 201303
  9. CLOPIDOGREL [Concomitant]
     Active Substance: CLOPIDOGREL BISULFATE
     Indication: TRANSIENT ISCHAEMIC ATTACK
     Dosage: 75 MG, QD, CURRENT
     Route: 048
     Dates: start: 201303

REACTIONS (2)
  - Bradycardia [Recovering/Resolving]
  - Bronchospasm [Recovering/Resolving]

NARRATIVE: CASE EVENT DATE: 20160330
